FAERS Safety Report 21090940 (Version 1)
Quarter: 2022Q3

REPORT INFORMATION
  Report Type: Spontaneous
  Country: FR (occurrence: FR)
  Receive Date: 20220716
  Receipt Date: 20220716
  Transmission Date: 20221027
  Serious: Yes (Other)
  Sender: FDA-Public Use
  Company Number: None

PATIENT
  Age: 68 Year
  Sex: Male
  Weight: 90 kg

DRUGS (2)
  1. DUTASTERIDE [Suspect]
     Active Substance: DUTASTERIDE
     Indication: Prostatic adenoma
     Dosage: UNIT DOSE: 0.5 MG , FREQUENCY : 1 DAYS
     Dates: start: 20210208, end: 20220322
  2. DOXAZOSIN [Suspect]
     Active Substance: DOXAZOSIN MESYLATE
     Indication: Prostatic adenoma
     Route: 065

REACTIONS (3)
  - Retrograde ejaculation [Recovered/Resolved]
  - Dysuria [Recovered/Resolved]
  - Dysuria [Recovered/Resolved]
